FAERS Safety Report 4555073-2 (Version None)
Quarter: 2005Q1

REPORT INFORMATION
  Report Type: 
  Country: None (occurrence: None)
  Receive Date: 20041228
  Receipt Date: 20040923
  Transmission Date: 20050727
  Serious: Yes (Other)
  Sender: FDA-Public Use
  Company Number: PHEH2004US10321

PATIENT
  Age: 59 Year
  Sex: Male

DRUGS (9)
  1. PAMIDRONATE DISODIUM [Suspect]
     Dates: start: 19980101
  2. ZOLEDRONATE (ZOLEDRONATE) SOLUTION FOR INJECTION [Suspect]
     Dosage: 4 MG, QMO
  3. SYNTHROID [Concomitant]
  4. VINCRISTINE + ADRIAMYCIN + DEXAMETHASONE (DOXORUBICIN, VINCRISTINE SUL [Concomitant]
  5. CARMUSTINE [Concomitant]
  6. CYTOXAN [Concomitant]
  7. MELPHALAN (MELPHALAN) [Concomitant]
  8. PREDNISONE [Concomitant]
  9. INTERFERON (INTERFERON) [Concomitant]

REACTIONS (5)
  - FULL BLOOD COUNT DECREASED [None]
  - HYPERBARIC OXYGEN THERAPY [None]
  - MALIGNANT NEOPLASM PROGRESSION [None]
  - OSTEONECROSIS [None]
  - WOUND DEBRIDEMENT [None]
